FAERS Safety Report 13080584 (Version 1)
Quarter: 2017Q1

REPORT INFORMATION
  Report Type: Spontaneous
  Country: FR (occurrence: FR)
  Receive Date: 20170103
  Receipt Date: 20170103
  Transmission Date: 20170428
  Serious: Yes (Hospitalization)
  Sender: FDA-Public Use
  Company Number: FR-JNJFOC-20161226735

PATIENT
  Age: 85 Year
  Sex: Female

DRUGS (5)
  1. PRADAXA [Suspect]
     Active Substance: DABIGATRAN ETEXILATE MESYLATE
     Indication: VENTRICULAR ARRHYTHMIA
     Route: 048
     Dates: start: 20161121
  2. DILTIAZEM. [Suspect]
     Active Substance: DILTIAZEM
     Indication: VENTRICULAR ARRHYTHMIA
     Route: 048
     Dates: start: 20161110, end: 20161129
  3. DIGOXINE NATIVELLE [Suspect]
     Active Substance: DIGOXIN
     Indication: VENTRICULAR ARRHYTHMIA
     Route: 065
     Dates: start: 20161207, end: 20161209
  4. XARELTO [Suspect]
     Active Substance: RIVAROXABAN
     Indication: VENTRICULAR ARRHYTHMIA
     Route: 048
     Dates: start: 20161110, end: 20161121
  5. DIGOXINE NATIVELLE [Suspect]
     Active Substance: DIGOXIN
     Indication: VENTRICULAR ARRHYTHMIA
     Route: 065
     Dates: end: 20161205

REACTIONS (2)
  - Generalised erythema [Recovered/Resolved]
  - Pruritus [Recovered/Resolved]

NARRATIVE: CASE EVENT DATE: 20161118
